FAERS Safety Report 6245660-8 (Version None)
Quarter: 2009Q2

REPORT INFORMATION
  Report Type: 
  Country: None (occurrence: None)
  Receive Date: 20090619
  Receipt Date: 20090316
  Transmission Date: 20091009
  Serious: No
  Sender: FDA-Public Use
  Company Number: SPV1-2009-00442

PATIENT
  Age: 14 Year
  Sex: Male
  Weight: 108.8 kg

DRUGS (3)
  1. VYVANSE [Suspect]
     Indication: ATTENTION DEFICIT/HYPERACTIVITY DISORDER
  2. CLARITIN [Suspect]
     Indication: NASOPHARYNGITIS
     Dosage: 20 MG, ORAL ; 10 MG
     Route: 048
     Dates: start: 20090215
  3. CLARITIN [Suspect]
     Indication: NASOPHARYNGITIS
     Dosage: 20 MG, ORAL ; 10 MG
     Route: 048
     Dates: start: 20090216

REACTIONS (2)
  - EPISTAXIS [None]
  - OFF LABEL USE [None]
